FAERS Safety Report 20429704 (Version 1)
Quarter: 2022Q1

REPORT INFORMATION
  Report Type: Report from Study
  Country: US (occurrence: US)
  Receive Date: 20220204
  Receipt Date: 20220204
  Transmission Date: 20220423
  Serious: Yes (Hospitalization, Other)
  Sender: FDA-Public Use
  Company Number: US-VERTEX PHARMACEUTICALS-2020-020639

PATIENT
  Sex: Female

DRUGS (15)
  1. TRIKAFTA [Suspect]
     Active Substance: ELEXACAFTOR\IVACAFTOR\TEZACAFTOR
     Indication: Cystic fibrosis
     Dosage: 2 ORANGE TABLETS EVERY OTHER DAY, 1 BLUE TABLET EVERY OTHER DAY ALTERNATING WITH ORANGE TABLETS
     Route: 048
     Dates: start: 20191217, end: 20201211
  2. ALBUTEROL SULFATE [Concomitant]
     Active Substance: ALBUTEROL SULFATE
  3. AMITIZA [Concomitant]
     Active Substance: LUBIPROSTONE
  4. AZITHROMYCIN [Concomitant]
     Active Substance: AZITHROMYCIN
  5. BISACODYL [Concomitant]
     Active Substance: BISACODYL
  6. CREON [Concomitant]
     Active Substance: PANCRELIPASE AMYLASE\PANCRELIPASE LIPASE\PANCRELIPASE PROTEASE
  7. ERYTHROMYCIN [Concomitant]
     Active Substance: ERYTHROMYCIN
  8. FLOVENT HFA [Concomitant]
     Active Substance: FLUTICASONE PROPIONATE
  9. SENNA ALATA [Concomitant]
  10. SODIUM CHLORIDE [Concomitant]
     Active Substance: SODIUM CHLORIDE
  11. OMEPRAZOLE [Concomitant]
     Active Substance: OMEPRAZOLE
  12. MIRALAX [Concomitant]
     Active Substance: POLYETHYLENE GLYCOL 3350
  13. PULMOZYME [Concomitant]
     Active Substance: DORNASE ALFA
  14. URSODIOL [Concomitant]
     Active Substance: URSODIOL
  15. SENOKOT [Concomitant]
     Active Substance: SENNOSIDES

REACTIONS (10)
  - Anxiety [Recovering/Resolving]
  - Depression [Recovering/Resolving]
  - Suicide attempt [Recovering/Resolving]
  - Suicidal ideation [Recovering/Resolving]
  - Coma [Recovering/Resolving]
  - Air embolism [Recovering/Resolving]
  - Self-injurious ideation [Recovering/Resolving]
  - Eating disorder [Recovering/Resolving]
  - Obsessive-compulsive disorder [Unknown]
  - Anger [Unknown]

NARRATIVE: CASE EVENT DATE: 20200101
